FAERS Safety Report 7998240-8 (Version None)
Quarter: 2011Q4

REPORT INFORMATION
  Report Type: 
  Country: None (occurrence: None)
  Receive Date: 20111221
  Receipt Date: 20110503
  Transmission Date: 20120403
  Serious: No
  Sender: FDA-Public Use
  Company Number: US-GLAXOSMITHKLINE-A0926695A

PATIENT

DRUGS (1)
  1. LOVAZA [Suspect]

REACTIONS (2)
  - EPISTAXIS [None]
  - CONTUSION [None]
